FAERS Safety Report 6076277-6 (Version None)
Quarter: 2009Q1

REPORT INFORMATION
  Report Type: 
  Country: None (occurrence: None)
  Receive Date: 20090212
  Receipt Date: 20090205
  Transmission Date: 20090719
  Serious: Yes (Other)
  Sender: FDA-Public Use
  Company Number: AU-ALLERGAN-0901605US

PATIENT
  Sex: Male

DRUGS (7)
  1. BOTOX [Suspect]
     Indication: DRUG USE FOR UNKNOWN INDICATION
  2. CALTRATE [Concomitant]
  3. COVERSYL [Concomitant]
  4. FLUTICASONE PROPIONATE [Concomitant]
  5. FOSAMAX [Concomitant]
  6. LYRICA [Concomitant]
  7. MAGMIN [Concomitant]

REACTIONS (2)
  - DYSPHAGIA [None]
  - PNEUMONIA ASPIRATION [None]
